FAERS Safety Report 24454350 (Version 2)
Quarter: 2024Q4

REPORT INFORMATION
  Report Type: Spontaneous
  Country: CH (occurrence: CH)
  Receive Date: 20241017
  Receipt Date: 20241018
  Transmission Date: 20250115
  Serious: No
  Sender: ROCHE
  Company Number: CH-ROCHE-3465133

PATIENT
  Age: 65 Year
  Sex: Female

DRUGS (6)
  1. MABTHERA [Suspect]
     Active Substance: RITUXIMAB
     Indication: Chronic lymphocytic leukaemia
     Route: 041
     Dates: start: 20230810, end: 20231102
  2. MABTHERA [Suspect]
     Active Substance: RITUXIMAB
     Route: 041
  3. MABTHERA [Suspect]
     Active Substance: RITUXIMAB
     Route: 042
  4. MABTHERA [Suspect]
     Active Substance: RITUXIMAB
     Route: 042
  5. VENETOCLAX [Concomitant]
     Active Substance: VENETOCLAX
  6. VALTREX [Concomitant]
     Active Substance: VALACYCLOVIR HYDROCHLORIDE

REACTIONS (3)
  - Cystitis [Unknown]
  - Female reproductive tract disorder [Recovered/Resolved]
  - Throat irritation [Recovered/Resolved]

NARRATIVE: CASE EVENT DATE: 20231010
